FAERS Safety Report 10736689 (Version 2)
Quarter: 2015Q1

REPORT INFORMATION
  Report Type: Spontaneous
  Country: US (occurrence: US)
  Receive Date: 20150126
  Receipt Date: 20150206
  Transmission Date: 20150721
  Serious: No
  Sender: FDA-Public Use
  Company Number: US-PFIZER INC-2015028016

PATIENT
  Age: 37 Year
  Sex: Female
  Weight: 77 kg

DRUGS (2)
  1. LYRICA [Suspect]
     Active Substance: PREGABALIN
     Indication: NEUROPATHY PERIPHERAL
     Dosage: 50 MG, 2X/DAY
     Route: 048
     Dates: start: 2013
  2. LYRICA [Suspect]
     Active Substance: PREGABALIN
     Dosage: 100 MG, 1X/DAY

REACTIONS (11)
  - Chills [Unknown]
  - Pyrexia [Unknown]
  - Decreased appetite [Unknown]
  - Myalgia [Unknown]
  - Nausea [Unknown]
  - Feeling of body temperature change [Unknown]
  - Lethargy [Unknown]
  - Influenza like illness [Unknown]
  - Malaise [Unknown]
  - Fear [Unknown]
  - Pain [Unknown]
